FAERS Safety Report 15673423 (Version 1)
Quarter: 2018Q4

REPORT INFORMATION
  Report Type: Spontaneous
  Country: US (occurrence: US)
  Receive Date: 20181129
  Receipt Date: 20181129
  Transmission Date: 20190205
  Serious: No
  Sender: FDA-Public Use
  Company Number: US-AMAG PHARMACEUTICALS, INC.-AMAG201805679

PATIENT
  Sex: Female

DRUGS (2)
  1. INTRAROSA [Suspect]
     Active Substance: PRASTERONE
     Indication: DYSPAREUNIA
     Dosage: TWICE A WEEK
     Route: 067
  2. INTRAROSA [Suspect]
     Active Substance: PRASTERONE
     Indication: POLLAKIURIA

REACTIONS (2)
  - Incorrect dosage administered [Not Recovered/Not Resolved]
  - Vaginal discharge [Not Recovered/Not Resolved]
